APPROVED DRUG PRODUCT: VEPESID
Active Ingredient: ETOPOSIDE
Strength: 20MG/ML **Federal Register determination that product was not discontinued or withdrawn for safety or effectiveness reasons**
Dosage Form/Route: INJECTABLE;INJECTION
Application: N018768 | Product #001
Applicant: CORDEN PHARMA LATINA SPA
Approved: Nov 10, 1983 | RLD: Yes | RS: No | Type: DISCN